FAERS Safety Report 7788496-9 (Version None)
Quarter: 2011Q3

REPORT INFORMATION
  Report Type: 
  Country: None (occurrence: None)
  Receive Date: 20110930
  Receipt Date: 20110922
  Transmission Date: 20111222
  Serious: No
  Sender: FDA-Public Use
  Company Number: PHHY2011JP72447

PATIENT
  Age: 39 Year
  Sex: Female

DRUGS (3)
  1. DEPAKENE [Concomitant]
     Dosage: 1200 MG, UNK
     Route: 048
  2. PHENYTOIN [Concomitant]
     Dosage: 275 MG, UNK
     Route: 048
  3. TEGRETOL [Suspect]
     Indication: EPILEPSY
     Dosage: 400 MG, DAILY
     Route: 048

REACTIONS (2)
  - OBESITY [None]
  - WEIGHT INCREASED [None]
